FAERS Safety Report 23432676 (Version 1)
Quarter: 2024Q1

REPORT INFORMATION
  Report Type: Spontaneous
  Country: None (occurrence: US)
  Receive Date: 20240123
  Receipt Date: 20240123
  Transmission Date: 20240410
  Serious: No
  Sender: FDA-Public Use
  Company Number: US-LNK INTERNATIONAL, INC.-2151768

PATIENT
  Sex: Male

DRUGS (4)
  1. CVS HEALTH NON-DROWSY NASAL DECONGESTANT [Suspect]
     Active Substance: PSEUDOEPHEDRINE HYDROCHLORIDE
     Indication: Sinus congestion
  2. ALBUTEROL [Concomitant]
     Active Substance: ALBUTEROL
  3. QVAR [Concomitant]
     Active Substance: BECLOMETHASONE DIPROPIONATE
  4. CRESTOR [Concomitant]
     Active Substance: ROSUVASTATIN CALCIUM

REACTIONS (6)
  - Anxiety [None]
  - Agitation [None]
  - Blood pressure measurement [None]
  - Heart rate increased [None]
  - Palpitations [None]
  - Self-injurious ideation [None]
